FAERS Safety Report 24630440 (Version 2)
Quarter: 2025Q1

REPORT INFORMATION
  Report Type: Report from Study
  Country: US (occurrence: US)
  Receive Date: 20241118
  Receipt Date: 20250207
  Transmission Date: 20250409
  Serious: No
  Sender: TAKEDA
  Company Number: US-TAKEDA-2024TUS046448

PATIENT
  Sex: Female
  Weight: 110 kg

DRUGS (18)
  1. HUMAN IMMUNOGLOBULIN G [Suspect]
     Active Substance: HUMAN IMMUNOGLOBULIN G
     Indication: Immunodeficiency common variable
     Dosage: 10 GRAM, 1/WEEK
     Dates: start: 20240428
  2. ACETAMINOPHEN [Concomitant]
     Active Substance: ACETAMINOPHEN
  3. EPINEPHRINE [Concomitant]
     Active Substance: EPINEPHRINE
  4. RABEPRAZOLE SODIUM [Concomitant]
     Active Substance: RABEPRAZOLE SODIUM
  5. Hair skin nails [Concomitant]
  6. SINGULAIR [Concomitant]
     Active Substance: MONTELUKAST SODIUM
  7. SPIRIVA [Concomitant]
     Active Substance: TIOTROPIUM BROMIDE MONOHYDRATE
  8. SPIRONOLACTONE [Concomitant]
     Active Substance: SPIRONOLACTONE
  9. MILI [Concomitant]
     Active Substance: ETHINYL ESTRADIOL\NORGESTIMATE
  10. GABAPENTIN [Concomitant]
     Active Substance: GABAPENTIN
  11. LIDOCAINE [Concomitant]
     Active Substance: LIDOCAINE
  12. BETAMETHASONE DIPROPIONATE, AUGMENTED [Concomitant]
  13. KETOROLAC TROMETHAMINE [Concomitant]
     Active Substance: KETOROLAC TROMETHAMINE
  14. BENADRYL ALLERGY [Concomitant]
     Active Substance: DIPHENHYDRAMINE HYDROCHLORIDE
  15. VENTOLIN HFA [Concomitant]
     Active Substance: ALBUTEROL SULFATE
  16. DIPHENHYDRAMINE HYDROCHLORIDE [Concomitant]
     Active Substance: DIPHENHYDRAMINE HYDROCHLORIDE
  17. ALPRAZOLAM [Concomitant]
     Active Substance: ALPRAZOLAM
  18. SYMBICORT [Concomitant]
     Active Substance: BUDESONIDE\FORMOTEROL FUMARATE DIHYDRATE

REACTIONS (3)
  - Hordeolum [Unknown]
  - Urinary tract infection [Unknown]
  - Sinusitis [Unknown]
